FAERS Safety Report 26120898 (Version 2)
Quarter: 2025Q4

REPORT INFORMATION
  Report Type: Spontaneous
  Country: US (occurrence: US)
  Receive Date: 20251204
  Receipt Date: 20251215
  Transmission Date: 20260118
  Serious: Yes (Other)
  Sender: MYLAN
  Company Number: US-MYLANLABS-2025M1101610

PATIENT
  Sex: Female

DRUGS (44)
  1. VALACYCLOVIR [Suspect]
     Active Substance: VALACYCLOVIR HYDROCHLORIDE
     Indication: Genital herpes
     Dosage: 1000 MILLIGRAM, BID
     Route: 061
  2. VALACYCLOVIR [Suspect]
     Active Substance: VALACYCLOVIR HYDROCHLORIDE
     Dosage: 1000 MILLIGRAM, BID
     Route: 048
  3. VALACYCLOVIR [Suspect]
     Active Substance: VALACYCLOVIR HYDROCHLORIDE
     Dosage: 1000 MILLIGRAM, BID
     Route: 048
  4. VALACYCLOVIR [Suspect]
     Active Substance: VALACYCLOVIR HYDROCHLORIDE
     Dosage: 1000 MILLIGRAM, BID
     Route: 061
  5. CIDOFOVIR [Suspect]
     Active Substance: CIDOFOVIR
     Indication: Herpes simplex
     Dosage: 345 MILLIGRAM, QW (IN SODIUM CHLORIDE ONCE WEEKLY)
  6. CIDOFOVIR [Suspect]
     Active Substance: CIDOFOVIR
     Dosage: 345 MILLIGRAM, QW (IN SODIUM CHLORIDE ONCE WEEKLY)
     Route: 042
  7. CIDOFOVIR [Suspect]
     Active Substance: CIDOFOVIR
     Dosage: 345 MILLIGRAM, QW (IN SODIUM CHLORIDE ONCE WEEKLY)
     Route: 042
  8. CIDOFOVIR [Suspect]
     Active Substance: CIDOFOVIR
     Dosage: 345 MILLIGRAM, QW (IN SODIUM CHLORIDE ONCE WEEKLY)
  9. FAMCICLOVIR [Suspect]
     Active Substance: FAMCICLOVIR
     Indication: Genital herpes
     Dosage: 500 MILLIGRAM, BID
  10. FAMCICLOVIR [Suspect]
     Active Substance: FAMCICLOVIR
     Dosage: 500 MILLIGRAM, BID
  11. FAMCICLOVIR [Suspect]
     Active Substance: FAMCICLOVIR
     Dosage: 500 MILLIGRAM, BID
     Route: 065
  12. FAMCICLOVIR [Suspect]
     Active Substance: FAMCICLOVIR
     Dosage: 500 MILLIGRAM, BID
     Route: 065
  13. FAMCICLOVIR [Suspect]
     Active Substance: FAMCICLOVIR
     Dosage: UNK (DOSE INCREASED)
  14. FAMCICLOVIR [Suspect]
     Active Substance: FAMCICLOVIR
     Dosage: UNK (DOSE INCREASED)
  15. FAMCICLOVIR [Suspect]
     Active Substance: FAMCICLOVIR
     Dosage: UNK (DOSE INCREASED)
     Route: 065
  16. FAMCICLOVIR [Suspect]
     Active Substance: FAMCICLOVIR
     Dosage: UNK (DOSE INCREASED)
     Route: 065
  17. PREDNISONE [Concomitant]
     Active Substance: PREDNISONE
     Indication: Autoimmune haemolytic anaemia
     Dosage: UNK
  18. PREDNISONE [Concomitant]
     Active Substance: PREDNISONE
     Indication: Immune thrombocytopenia
     Dosage: UNK
     Route: 065
  19. PREDNISONE [Concomitant]
     Active Substance: PREDNISONE
     Dosage: UNK
     Route: 065
  20. PREDNISONE [Concomitant]
     Active Substance: PREDNISONE
     Dosage: UNK
  21. RITUXIMAB [Concomitant]
     Active Substance: RITUXIMAB
     Indication: Autoimmune haemolytic anaemia
     Dosage: UNK
  22. RITUXIMAB [Concomitant]
     Active Substance: RITUXIMAB
     Indication: Immune thrombocytopenia
     Dosage: UNK
     Route: 065
  23. RITUXIMAB [Concomitant]
     Active Substance: RITUXIMAB
     Dosage: UNK
     Route: 065
  24. RITUXIMAB [Concomitant]
     Active Substance: RITUXIMAB
     Dosage: UNK
  25. DOXYCYCLINE [Concomitant]
     Active Substance: DOXYCYCLINE
     Indication: Abscess limb
     Dosage: UNK, FOR 1 WEEK
     Route: 061
  26. DOXYCYCLINE [Concomitant]
     Active Substance: DOXYCYCLINE
     Dosage: UNK, FOR 1 WEEK
     Route: 048
  27. DOXYCYCLINE [Concomitant]
     Active Substance: DOXYCYCLINE
     Dosage: UNK, FOR 1 WEEK
     Route: 048
  28. DOXYCYCLINE [Concomitant]
     Active Substance: DOXYCYCLINE
     Dosage: UNK, FOR 1 WEEK
     Route: 061
  29. CEPHALEXIN [Concomitant]
     Active Substance: CEPHALEXIN
     Indication: Abscess limb
     Dosage: UNK, FOR 1 WEEK
     Route: 061
  30. CEPHALEXIN [Concomitant]
     Active Substance: CEPHALEXIN
     Dosage: UNK, FOR 1 WEEK
     Route: 048
  31. CEPHALEXIN [Concomitant]
     Active Substance: CEPHALEXIN
     Dosage: UNK, FOR 1 WEEK
     Route: 048
  32. CEPHALEXIN [Concomitant]
     Active Substance: CEPHALEXIN
     Dosage: UNK, FOR 1 WEEK
     Route: 061
  33. AMOXICILLIN [Concomitant]
     Active Substance: AMOXICILLIN
     Indication: Abscess limb
     Dosage: UNK, FOR 1 MONTH
  34. AMOXICILLIN [Concomitant]
     Active Substance: AMOXICILLIN
     Dosage: UNK, FOR 1 MONTH
     Route: 065
  35. AMOXICILLIN [Concomitant]
     Active Substance: AMOXICILLIN
     Dosage: UNK, FOR 1 MONTH
     Route: 065
  36. AMOXICILLIN [Concomitant]
     Active Substance: AMOXICILLIN
     Dosage: UNK, FOR 1 MONTH
  37. CIPROFLOXACIN [Concomitant]
     Active Substance: CIPROFLOXACIN
     Indication: Abscess limb
     Dosage: UNK
  38. CIPROFLOXACIN [Concomitant]
     Active Substance: CIPROFLOXACIN
     Dosage: UNK
     Route: 065
  39. CIPROFLOXACIN [Concomitant]
     Active Substance: CIPROFLOXACIN
     Dosage: UNK
     Route: 065
  40. CIPROFLOXACIN [Concomitant]
     Active Substance: CIPROFLOXACIN
     Dosage: UNK
  41. SODIUM CHLORIDE [Concomitant]
     Active Substance: SODIUM CHLORIDE
     Indication: Vehicle solution use
     Dosage: 100 MILLILITER, QW
  42. SODIUM CHLORIDE [Concomitant]
     Active Substance: SODIUM CHLORIDE
     Dosage: 100 MILLILITER, QW
     Route: 042
  43. SODIUM CHLORIDE [Concomitant]
     Active Substance: SODIUM CHLORIDE
     Dosage: 100 MILLILITER, QW
     Route: 042
  44. SODIUM CHLORIDE [Concomitant]
     Active Substance: SODIUM CHLORIDE
     Dosage: 100 MILLILITER, QW

REACTIONS (5)
  - Drug ineffective [Unknown]
  - Hypertransaminasaemia [Unknown]
  - Hypertension [Unknown]
  - Tachycardia [Unknown]
  - Nausea [Unknown]
